FAERS Safety Report 24155072 (Version 1)
Quarter: 2024Q3

REPORT INFORMATION
  Report Type: Spontaneous
  Country: US (occurrence: US)
  Receive Date: 20240731
  Receipt Date: 20240731
  Transmission Date: 20241016
  Serious: Yes (Death, Life-Threatening, Hospitalization, Other)
  Sender: Haleon PLC
  Company Number: US-HALEON-2182072

PATIENT
  Sex: Male

DRUGS (1)
  1. ROBITUSSIN COUGH AND CHEST CONGESTION DM [Suspect]
     Active Substance: DEXTROMETHORPHAN HYDROBROMIDE\GUAIFENESIN
     Indication: Product used for unknown indication
     Dosage: EXPDATE:20250531
     Dates: start: 20231225, end: 20240115

REACTIONS (8)
  - Brain death [Fatal]
  - Bacterial infection [Fatal]
  - Coma [Fatal]
  - Brain abscess [Fatal]
  - Seizure [Fatal]
  - Central nervous system lesion [Fatal]
  - Central nervous system infection [Fatal]
  - Product formulation issue [Fatal]
